FAERS Safety Report 7443104-1 (Version None)
Quarter: 2011Q2

REPORT INFORMATION
  Report Type: 
  Country: None (occurrence: None)
  Receive Date: 20110428
  Receipt Date: 20110426
  Transmission Date: 20111010
  Serious: Yes (Hospitalization)
  Sender: FDA-Public Use
  Company Number: DE-ABBOTT-11P-062-0721847-00

PATIENT
  Sex: Female

DRUGS (2)
  1. ANTITHROMBOTIC DRUG [Concomitant]
     Indication: THROMBOSIS PROPHYLAXIS
     Dates: start: 20110101
  2. HUMIRA [Suspect]
     Indication: PSORIATIC ARTHROPATHY
     Route: 058
     Dates: start: 20090715

REACTIONS (1)
  - RHEUMATOID ARTHRITIS [None]
